FAERS Safety Report 24570646 (Version 1)
Quarter: 2024Q4

REPORT INFORMATION
  Report Type: Spontaneous
  Country: CN (occurrence: CN)
  Receive Date: 20241031
  Receipt Date: 20241031
  Transmission Date: 20250115
  Serious: Yes (Hospitalization, Other)
  Sender: BEIGENE
  Company Number: CN-BEIGENE-BGN-2024-016982

PATIENT

DRUGS (8)
  1. TISLELIZUMAB [Suspect]
     Active Substance: TISLELIZUMAB
     Indication: Phaeochromocytoma malignant
     Dosage: 200 MILLIGRAM
     Route: 041
     Dates: start: 20240828
  2. TISLELIZUMAB [Suspect]
     Active Substance: TISLELIZUMAB
     Indication: Neuroendocrine carcinoma
  3. CISPLATIN [Suspect]
     Active Substance: CISPLATIN
     Indication: Neuroendocrine carcinoma
     Dosage: 40 MILLIGRAM
     Route: 041
     Dates: start: 20240828
  4. CISPLATIN [Suspect]
     Active Substance: CISPLATIN
     Indication: Phaeochromocytoma malignant
  5. ETOPOSIDE [Suspect]
     Active Substance: ETOPOSIDE
     Indication: Phaeochromocytoma malignant
     Dosage: 120 MILLIGRAM
     Route: 041
     Dates: start: 20240828
  6. ETOPOSIDE [Suspect]
     Active Substance: ETOPOSIDE
     Indication: Neuroendocrine carcinoma
  7. SODIUM CHLORIDE [Concomitant]
     Active Substance: SODIUM CHLORIDE
     Indication: Vehicle solution use
     Dosage: 500 MILLILITER
     Route: 041
     Dates: start: 20240828, end: 20240901
  8. SODIUM CHLORIDE [Concomitant]
     Active Substance: SODIUM CHLORIDE
     Dosage: 500 MILLILITER
     Route: 041
     Dates: start: 20240828, end: 20240831

REACTIONS (2)
  - Myelosuppression [Recovering/Resolving]
  - Red blood cell count decreased [Recovering/Resolving]

NARRATIVE: CASE EVENT DATE: 20240916
